FAERS Safety Report 20730252 (Version 1)
Quarter: 2022Q2

REPORT INFORMATION
  Report Type: Spontaneous
  Country: US (occurrence: None)
  Receive Date: 20220419
  Receipt Date: 20220419
  Transmission Date: 20220721
  Serious: Yes (Other)
  Sender: FDA-Public Use
  Company Number: None

PATIENT
  Age: 31 Year
  Sex: Male
  Weight: 93.69 kg

DRUGS (4)
  1. LAMOTRIGINE [Suspect]
     Active Substance: LAMOTRIGINE
     Dosage: FREQUENCY : AT BEDTIME;?
     Route: 048
     Dates: start: 20220215, end: 20220221
  2. HYDROXYZINE [Concomitant]
     Active Substance: HYDROXYZINE HYDROCHLORIDE
  3. LORAZEPAM [Concomitant]
     Active Substance: LORAZEPAM
  4. OLANZAPINE [Concomitant]
     Active Substance: OLANZAPINE

REACTIONS (6)
  - Rash [None]
  - Rash erythematous [None]
  - Burning sensation [None]
  - Irritability [None]
  - Negative thoughts [None]
  - Therapy interrupted [None]

NARRATIVE: CASE EVENT DATE: 20220220
